FAERS Safety Report 17670995 (Version 1)
Quarter: 2020Q2

REPORT INFORMATION
  Report Type: Spontaneous
  Country: US (occurrence: US)
  Receive Date: 20200415
  Receipt Date: 20200415
  Transmission Date: 20200713
  Serious: Yes (Death, Hospitalization, Other)
  Sender: FDA-Public Use
  Company Number: US-PFIZER INC-2020152664

PATIENT
  Age: 51 Year
  Sex: Female
  Weight: 108 kg

DRUGS (5)
  1. MEROPENEM. [Concomitant]
     Active Substance: MEROPENEM
     Indication: ASPERGILLUS INFECTION
     Dosage: 1 G, 3X/DAY
     Route: 042
  2. AMPHOTERICIN B, LIPOSOME [Concomitant]
     Active Substance: AMPHOTERICIN B
     Indication: EVIDENCE BASED TREATMENT
     Dosage: 3 MG/KG, DAILY
     Route: 017
  3. METHYLPREDNISOLONE SODIUM SUCCINATE. [Suspect]
     Active Substance: METHYLPREDNISOLONE SODIUM SUCCINATE
     Indication: ACUTE RESPIRATORY DISTRESS SYNDROME
     Dosage: 100 MG, DAILY
     Route: 042
  4. METHYLPREDNISOLONE SODIUM SUCCINATE. [Suspect]
     Active Substance: METHYLPREDNISOLONE SODIUM SUCCINATE
     Dosage: 1 MG/KG, DAILY (INFUSION)
  5. MEROPENEM. [Concomitant]
     Active Substance: MEROPENEM
     Dosage: 1 G, 2X/DAY
     Route: 042

REACTIONS (1)
  - Bronchopulmonary aspergillosis [Fatal]
